FAERS Safety Report 8572590-9 (Version None)
Quarter: 2012Q3

REPORT INFORMATION
  Report Type: 
  Country: None (occurrence: None)
  Receive Date: 20120806
  Receipt Date: 20120731
  Transmission Date: 20120928
  Serious: Yes (Death)
  Sender: FDA-Public Use
  Company Number: FR-ROCHE-1095719

PATIENT
  Sex: Female

DRUGS (8)
  1. HUMIRA [Suspect]
     Indication: RHEUMATOID ARTHRITIS
     Route: 058
     Dates: start: 20061001, end: 20100520
  2. METHOTREXATE [Suspect]
     Dates: start: 19990101, end: 20110801
  3. METHOTREXATE [Suspect]
     Indication: RHEUMATOID ARTHRITIS
     Route: 048
     Dates: start: 19970101, end: 20110801
  4. LEVOTHYROXINE SODIUM [Concomitant]
  5. ALDACTONE [Concomitant]
  6. ENBREL [Suspect]
     Indication: RHEUMATOID ARTHRITIS
     Route: 058
     Dates: start: 20051201, end: 20061001
  7. MABTHERA [Suspect]
     Indication: RHEUMATOID ARTHRITIS
     Route: 042
     Dates: start: 20100505, end: 20110401
  8. HUMIRA [Suspect]
     Dates: start: 20110401

REACTIONS (1)
  - MIXED HEPATOCELLULAR CHOLANGIOCARCINOMA [None]
